FAERS Safety Report 5267982-X (Version None)
Quarter: 2007Q1

REPORT INFORMATION
  Report Type: 
  Country: None (occurrence: None)
  Receive Date: 20061214
  Receipt Date: 20051129
  Transmission Date: 20070707
  Serious: Yes (Other)
  Sender: FDA-Public Use
  Company Number: 2005162516

PATIENT
  Age: 54 Year
  Sex: Male
  Weight: 70.7611 kg

DRUGS (4)
  1. ALPRAZOLAM [Suspect]
     Indication: ANXIETY
     Dates: start: 20030101, end: 20050904
  2. ROXICODONE [Concomitant]
  3. LIPITOR [Concomitant]
  4. FIORICET [Concomitant]

REACTIONS (15)
  - ANGER [None]
  - ANOREXIA [None]
  - CONDITION AGGRAVATED [None]
  - DEPRESSION [None]
  - DYSARTHRIA [None]
  - FEELING OF BODY TEMPERATURE CHANGE [None]
  - HYPOGEUSIA [None]
  - HYPOSMIA [None]
  - INSOMNIA [None]
  - LISTLESS [None]
  - PANIC ATTACK [None]
  - PARAPHILIA [None]
  - SENSATION OF HEAVINESS [None]
  - SENSATION OF PRESSURE [None]
  - VISUAL DISTURBANCE [None]
